FAERS Safety Report 4589978-3 (Version None)
Quarter: 2005Q1

REPORT INFORMATION
  Report Type: 
  Country: None (occurrence: None)
  Receive Date: 20050125
  Receipt Date: 20041208
  Transmission Date: 20050727
  Serious: No
  Sender: FDA-Public Use
  Company Number: USA040773586

PATIENT
  Age: 75 Year
  Sex: Female

DRUGS (4)
  1. FORTEO [Suspect]
     Indication: OSTEOPOROSIS
     Dosage: 20 UG DAY
     Dates: start: 20040601
  2. CORAL CALCIUM [Concomitant]
  3. ACTONEL [Concomitant]
  4. PRAVACHOL [Concomitant]

REACTIONS (8)
  - ARTHRALGIA [None]
  - ARTHROPATHY [None]
  - BLOOD CALCIUM INCREASED [None]
  - CONSTIPATION [None]
  - INJECTION SITE ERYTHEMA [None]
  - INSOMNIA [None]
  - RESTLESS LEGS SYNDROME [None]
  - SKIN ODOUR ABNORMAL [None]
